FAERS Safety Report 16266426 (Version 3)
Quarter: 2019Q2

REPORT INFORMATION
  Report Type: Report from Study
  Country: IT (occurrence: IT)
  Receive Date: 20190502
  Receipt Date: 20190611
  Transmission Date: 20190711
  Serious: Yes (Hospitalization)
  Sender: FDA-Public Use
  Company Number: IT-JNJFOC-20190436495

PATIENT
  Age: 56 Year
  Sex: Male
  Weight: 100 kg

DRUGS (18)
  1. CYCLOPHOSPHAMIDE. [Suspect]
     Active Substance: CYCLOPHOSPHAMIDE
     Indication: MANTLE CELL LYMPHOMA
     Route: 065
     Dates: start: 20180129, end: 20180531
  2. MAGNESIUM [Concomitant]
     Active Substance: MAGNESIUM
     Indication: BLOOD MAGNESIUM DECREASED
     Route: 065
     Dates: start: 20180712
  3. OMEPRAZOLE. [Concomitant]
     Active Substance: OMEPRAZOLE
     Indication: PROPHYLAXIS AGAINST GASTROINTESTINAL ULCER
     Route: 065
     Dates: start: 20180123
  4. VINCRISTINE [Suspect]
     Active Substance: VINCRISTINE
     Indication: MANTLE CELL LYMPHOMA
     Route: 065
     Dates: start: 20180129, end: 20180531
  5. CARMUSTINE. [Concomitant]
     Active Substance: CARMUSTINE
     Route: 065
     Dates: start: 20180727, end: 20180801
  6. MELPHALAN. [Concomitant]
     Active Substance: MELPHALAN
     Route: 065
     Dates: start: 20180727, end: 20180801
  7. DOXORUBICIN [Suspect]
     Active Substance: DOXORUBICIN
     Indication: MANTLE CELL LYMPHOMA
     Route: 065
     Dates: start: 20180129, end: 20180531
  8. CYTARABINE. [Concomitant]
     Active Substance: CYTARABINE
     Route: 065
     Dates: start: 20180727, end: 20180801
  9. FOLIC ACID. [Concomitant]
     Active Substance: FOLIC ACID
     Indication: PROPHYLAXIS
     Route: 065
     Dates: start: 20180827
  10. DEXAMETHASONE. [Suspect]
     Active Substance: DEXAMETHASONE
     Indication: MANTLE CELL LYMPHOMA
     Route: 065
     Dates: start: 20180129, end: 20180531
  11. CYTARABINE. [Suspect]
     Active Substance: CYTARABINE
     Indication: MANTLE CELL LYMPHOMA
     Route: 065
     Dates: start: 20180129, end: 20180531
  12. ETOPOSIDE. [Concomitant]
     Active Substance: ETOPOSIDE
     Route: 065
     Dates: start: 20180727, end: 20180801
  13. PREDNISONE. [Suspect]
     Active Substance: PREDNISONE
     Indication: MANTLE CELL LYMPHOMA
     Route: 065
     Dates: start: 20180129, end: 20180531
  14. POTASSIUM [Concomitant]
     Active Substance: POTASSIUM
     Indication: BLOOD POTASSIUM DECREASED
     Route: 065
     Dates: start: 20181004
  15. BACTRIM [Concomitant]
     Active Substance: SULFAMETHOXAZOLE\TRIMETHOPRIM
     Indication: INFECTION PROPHYLAXIS
     Route: 065
     Dates: start: 20180123
  16. CISPLATIN. [Suspect]
     Active Substance: CISPLATIN
     Indication: MANTLE CELL LYMPHOMA
     Route: 065
     Dates: start: 20180129, end: 20180531
  17. IBRUTINIB [Suspect]
     Active Substance: IBRUTINIB
     Indication: MANTLE CELL LYMPHOMA
     Route: 048
     Dates: start: 20180130, end: 20190422
  18. RITUXIMAB. [Suspect]
     Active Substance: RITUXIMAB
     Indication: MANTLE CELL LYMPHOMA
     Route: 065
     Dates: start: 20180129, end: 20180531

REACTIONS (2)
  - Febrile neutropenia [Recovered/Resolved]
  - Pneumonia [Recovered/Resolved]

NARRATIVE: CASE EVENT DATE: 20190423
